FAERS Safety Report 7594084-X (Version None)
Quarter: 2011Q3

REPORT INFORMATION
  Report Type: 
  Country: None (occurrence: None)
  Receive Date: 20110706
  Receipt Date: 20110628
  Transmission Date: 20111222
  Serious: Yes (Other)
  Sender: FDA-Public Use
  Company Number: CA-PFIZER INC-2011144913

PATIENT
  Age: 40 Year
  Sex: Female

DRUGS (2)
  1. CORTEF [Suspect]
     Dosage: 10 MG, UNK
     Dates: start: 20110415
  2. CORTEF [Suspect]
     Dosage: 15 MG, UNK
     Dates: start: 20100101, end: 20110415

REACTIONS (1)
  - SYNCOPE [None]
